FAERS Safety Report 7292732-5 (Version None)
Quarter: 2011Q1

REPORT INFORMATION
  Report Type: 
  Country: None (occurrence: None)
  Receive Date: 20110215
  Receipt Date: 20110204
  Transmission Date: 20110831
  Serious: Yes (Other)
  Sender: FDA-Public Use
  Company Number: FR-JNJFOC-20110202190

PATIENT
  Age: 49 Year
  Sex: Female

DRUGS (8)
  1. CARTREX [Concomitant]
     Route: 048
  2. PERFALGAN [Concomitant]
     Indication: PREMEDICATION
     Route: 042
  3. ALPRAZOLAM [Concomitant]
     Route: 048
  4. REMICADE [Suspect]
     Indication: ANKYLOSING SPONDYLITIS
     Route: 042
  5. LEVOTHYROX [Concomitant]
     Indication: HYPOTHYROIDISM
     Route: 048
  6. LAROXYL ROCHE [Concomitant]
     Route: 048
  7. POLARAMINE [Concomitant]
     Indication: PREMEDICATION
     Route: 042
  8. OMEPRAZOLE [Concomitant]
     Route: 048

REACTIONS (6)
  - OCULAR HYPERAEMIA [None]
  - MALAISE [None]
  - HYPERSENSITIVITY [None]
  - ERYTHEMA [None]
  - HOT FLUSH [None]
  - CHEST DISCOMFORT [None]
